FAERS Safety Report 9270581 (Version 2)
Quarter: 2013Q2

REPORT INFORMATION
  Report Type: Report from Study
  Country: IN (occurrence: IN)
  Receive Date: 20130503
  Receipt Date: 20130509
  Transmission Date: 20140414
  Serious: Yes (Hospitalization)
  Sender: FDA-Public Use
  Company Number: PHHO2013IN004596

PATIENT
  Age: 61 Year
  Sex: Female
  Weight: 43 kg

DRUGS (9)
  1. BLINDED ENALAPRIL [Suspect]
     Indication: CARDIAC FAILURE CHRONIC
     Dosage: DOUBLE BLIND
     Route: 048
     Dates: start: 20120605
  2. BLINDED LCZ696 [Suspect]
     Indication: CARDIAC FAILURE CHRONIC
     Dosage: DOUBLE BLIND
     Route: 048
     Dates: start: 20120605
  3. BLINDED NO TREATMENT RECEIVED [Suspect]
     Indication: CARDIAC FAILURE CHRONIC
     Dosage: DOUBLE BLIND
     Route: 048
     Dates: start: 20120605
  4. FUROSEMIDE [Suspect]
  5. TORASEMIDE [Concomitant]
     Dosage: 10 MG, QD
  6. DIGOXIN [Concomitant]
     Indication: CARDIAC FAILURE
     Dosage: 0.25 MG, QD
     Route: 048
  7. ROSUVASTATIN [Concomitant]
     Dosage: 10 MG, QD
     Route: 048
  8. ACITROM [Concomitant]
     Indication: ANTICOAGULANT THERAPY
     Dosage: 1 MG, QD
     Route: 048
  9. CARVEDILOL [Concomitant]
     Dosage: 3125 MG, BID
     Route: 048

REACTIONS (2)
  - Cardiac failure [Recovered/Resolved]
  - Cardiac failure congestive [Recovered/Resolved]
